FAERS Safety Report 8563785-9 (Version None)
Quarter: 2012Q3

REPORT INFORMATION
  Report Type: 
  Country: None (occurrence: None)
  Receive Date: 20120803
  Receipt Date: 20120723
  Transmission Date: 20120928
  Serious: Yes (Hospitalization)
  Sender: FDA-Public Use
  Company Number: US-009507513-1207USA010757

PATIENT

DRUGS (1)
  1. ZOCOR [Suspect]
     Dosage: 80 MG, QD
     Route: 048

REACTIONS (6)
  - ABASIA [None]
  - LIVER DISORDER [None]
  - BLOOD TEST ABNORMAL [None]
  - CORONARY ARTERY OCCLUSION [None]
  - MUSCULAR WEAKNESS [None]
  - MUSCLE DISORDER [None]
